FAERS Safety Report 8351457-5 (Version None)
Quarter: 2012Q2

REPORT INFORMATION
  Report Type: 
  Country: None (occurrence: None)
  Receive Date: 20120510
  Receipt Date: 20120426
  Transmission Date: 20120825
  Serious: Yes (Life-Threatening, Hospitalization)
  Sender: FDA-Public Use
  Company Number: US-ROCHE-1066501

PATIENT
  Sex: Female
  Weight: 99.73 kg

DRUGS (5)
  1. COPEGUS [Suspect]
     Indication: HEPATITIS C
     Dosage: 3 DOSAGE FORM
     Route: 048
     Dates: start: 20120120, end: 20120129
  2. CLONAZEPAM [Concomitant]
     Dates: end: 20120127
  3. BLINDED ALISPORIVIR [Suspect]
     Indication: HEPATITIS C
     Route: 048
     Dates: start: 20120120, end: 20120129
  4. LISINOPRIL [Concomitant]
  5. PEGASYS [Suspect]
     Indication: HEPATITIS C
     Route: 058
     Dates: start: 20120120, end: 20120127

REACTIONS (2)
  - SUBARACHNOID HAEMORRHAGE [None]
  - CONCOMITANT DISEASE PROGRESSION [None]
